FAERS Safety Report 20559130 (Version 7)
Quarter: 2024Q1

REPORT INFORMATION
  Report Type: Spontaneous
  Country: US (occurrence: US)
  Receive Date: 20220307
  Receipt Date: 20240315
  Transmission Date: 20240410
  Serious: Yes (Hospitalization, Disabling, Other)
  Sender: FDA-Public Use
  Company Number: US-ORGANON-O2203USA000446

PATIENT
  Sex: Male

DRUGS (9)
  1. SINGULAIR [Suspect]
     Active Substance: MONTELUKAST SODIUM
     Indication: Asthma
     Dosage: 5 MILLIGRAM
     Route: 048
     Dates: start: 2008, end: 2014
  2. SINGULAIR [Suspect]
     Active Substance: MONTELUKAST SODIUM
     Indication: Asthma
     Dosage: 10 MILLIGRAM
     Route: 048
     Dates: start: 2014, end: 202103
  3. LORATADINE [Concomitant]
     Active Substance: LORATADINE
     Dosage: UNK
     Route: 048
  4. HYDROCHLOROTHIAZIDE [Concomitant]
     Active Substance: HYDROCHLOROTHIAZIDE
     Dosage: UNK
     Route: 048
  5. ARIPIPRAZOLE [Concomitant]
     Active Substance: ARIPIPRAZOLE
     Dosage: UNK
     Route: 048
  6. OMEPRAZOLE SODIUM [Concomitant]
     Active Substance: OMEPRAZOLE SODIUM
     Dosage: UNK
     Route: 048
  7. GUANFACINE HYDROCHLORIDE [Concomitant]
     Active Substance: GUANFACINE HYDROCHLORIDE
     Dosage: UNK, Q12H
     Route: 048
  8. MESALAMINE [Concomitant]
     Active Substance: MESALAMINE
     Dosage: UNK
     Route: 048
  9. VITAMIN D3 [Concomitant]
     Active Substance: CHOLECALCIFEROL
     Dosage: UNK 1000 UT
     Route: 048

REACTIONS (37)
  - Colitis ulcerative [Recovered/Resolved]
  - Neuropsychological symptoms [Not Recovered/Not Resolved]
  - Obsessive-compulsive disorder [Not Recovered/Not Resolved]
  - Mental disorder [Not Recovered/Not Resolved]
  - Depression [Not Recovered/Not Resolved]
  - Suicidal ideation [Unknown]
  - Aggression [Not Recovered/Not Resolved]
  - Tic [Not Recovered/Not Resolved]
  - Dysphemia [Not Recovered/Not Resolved]
  - Colitis ulcerative [Not Recovered/Not Resolved]
  - Haematochezia [Recovering/Resolving]
  - Colitis ulcerative [Not Recovered/Not Resolved]
  - Vitamin D deficiency [Unknown]
  - Overweight [Not Recovered/Not Resolved]
  - Self-injurious ideation [Unknown]
  - Anaemia [Unknown]
  - Attention deficit hyperactivity disorder [Recovering/Resolving]
  - Dysphagia [Unknown]
  - Social avoidant behaviour [Unknown]
  - Tonsillitis streptococcal [Not Recovered/Not Resolved]
  - Sleep disorder [Recovered/Resolved]
  - Stomatitis [Unknown]
  - Constipation [Unknown]
  - Anxiety [Unknown]
  - Irritability [Unknown]
  - Abdominal pain [Not Recovered/Not Resolved]
  - Visual impairment [Unknown]
  - Rash [Unknown]
  - Gastrointestinal inflammation [Unknown]
  - Otitis media [Unknown]
  - Pharyngitis streptococcal [Unknown]
  - Varicella [Unknown]
  - Frequent bowel movements [Unknown]
  - Abnormal loss of weight [Unknown]
  - Social anxiety disorder [Unknown]
  - Abdominal discomfort [Not Recovered/Not Resolved]
  - Mouth ulceration [Unknown]

NARRATIVE: CASE EVENT DATE: 20080101
